FAERS Safety Report 6764229-X (Version None)
Quarter: 2010Q2

REPORT INFORMATION
  Report Type: 
  Country: None (occurrence: None)
  Receive Date: 20100610
  Receipt Date: 20100604
  Transmission Date: 20101027
  Serious: Yes (Hospitalization)
  Sender: FDA-Public Use
  Company Number: D0067733A

PATIENT
  Sex: Male

DRUGS (5)
  1. REQUIP [Suspect]
     Indication: PARKINSON'S DISEASE
     Dosage: 24MG PER DAY
     Route: 048
     Dates: start: 20080712
  2. AMANTADINE HCL [Suspect]
     Dosage: 200MG TWICE PER DAY
     Route: 065
     Dates: start: 20060518
  3. TAMSULOSIN HCL [Concomitant]
     Dosage: .4MG PER DAY
     Route: 048
  4. MIRTAZAPINE [Concomitant]
     Dosage: 15MG PER DAY
     Route: 065
  5. TORSEMIDE [Concomitant]
     Route: 065

REACTIONS (8)
  - ADENOMA BENIGN [None]
  - CONSTIPATION [None]
  - IMPAIRED HEALING [None]
  - INGUINAL HERNIA [None]
  - LIBIDO INCREASED [None]
  - OEDEMA PERIPHERAL [None]
  - PARAESTHESIA [None]
  - TENSION [None]
